FAERS Safety Report 19816278 (Version 1)
Quarter: 2021Q3

REPORT INFORMATION
  Report Type: Other
  Country: GB (occurrence: PL)
  Receive Date: 20210909
  Receipt Date: 20210909
  Transmission Date: 20211014
  Serious: No
  Sender: FDA-Public Use
  Company Number: PL-B.BRAUN MEDICAL INC.-2118222

PATIENT
  Age: 27 Year
  Sex: Female

DRUGS (1)
  1. MAGNESIUM SULFATE IN DEXTROSE [Suspect]
     Active Substance: MAGNESIUM SULFATE
     Indication: ASTHMA

REACTIONS (2)
  - Drug ineffective for unapproved indication [None]
  - Exposure during pregnancy [Recovered/Resolved]
